FAERS Safety Report 8047019-X (Version None)
Quarter: 2012Q1

REPORT INFORMATION
  Report Type: 
  Country: None (occurrence: None)
  Receive Date: 20120116
  Receipt Date: 20111206
  Transmission Date: 20120608
  Serious: No
  Sender: FDA-Public Use
  Company Number: US-MYLANLABS-2011S1025216

PATIENT
  Age: 59 Year
  Sex: Male
  Weight: 72.58 kg

DRUGS (7)
  1. TAMSULOSIN HCL [Suspect]
     Route: 048
     Dates: start: 20110401, end: 20111101
  2. ALBUTEROL [Concomitant]
     Indication: ASTHMA
  3. ADVAIR DISKUS 100/50 [Concomitant]
     Indication: ASTHMA
  4. SPIRIVA [Concomitant]
     Indication: ASTHMA
  5. TAMSULOSIN HCL [Suspect]
     Route: 048
     Dates: start: 20110401, end: 20111101
  6. TAMSULOSIN HCL [Suspect]
     Indication: PROSTATOMEGALY
     Route: 048
     Dates: start: 20110401, end: 20111101
  7. TAMSULOSIN HCL [Suspect]
     Indication: DYSURIA
     Route: 048
     Dates: start: 20110401, end: 20111101

REACTIONS (2)
  - DYSURIA [None]
  - DRUG INEFFECTIVE [None]
